FAERS Safety Report 21604290 (Version 1)
Quarter: 2022Q4

REPORT INFORMATION
  Report Type: Spontaneous
  Country: DE (occurrence: DE)
  Receive Date: 20221116
  Receipt Date: 20221116
  Transmission Date: 20230113
  Serious: Yes (Death, Hospitalization, Other)
  Sender: FDA-Public Use
  Company Number: None

PATIENT
  Age: 94 Year
  Sex: Male

DRUGS (10)
  1. APIXABAN [Suspect]
     Active Substance: APIXABAN
     Indication: Product used for unknown indication
     Dosage: 2.5 MG, PAUSED
  2. TORSEMIDE [Concomitant]
     Active Substance: TORSEMIDE
     Dosage: STRENGTH: 10 MG, 1-0-0-0
  3. CARBIMAZOL HEXAL [Concomitant]
     Dosage: STRENGTH: 5 MG, 1-0-0-0
  4. BISOPROLOL [Concomitant]
     Active Substance: BISOPROLOL
     Dosage: 2.5 MG, 1-0-1-0
  5. FOLIC ACID [Concomitant]
     Active Substance: FOLIC ACID
     Dosage: STRENGTH: 0.4 MG, 1-0-0-0
  6. CHOLECALCIFEROL [Concomitant]
     Active Substance: CHOLECALCIFEROL
     Dosage: 1000 IE, 1-0-0-0
  7. AMLODIPINE W/HYDROCHLOROTHIAZIDE [Concomitant]
     Dosage: STRENGTH: 10MG/160MG/25MG
  8. MOVICOL [Concomitant]
     Active Substance: POLYETHYLENE GLYCOL 3350\POTASSIUM CHLORIDE\SODIUM BICARBONATE\SODIUM CHLORIDE
     Dosage: 1-0-1-0, SACHET, GRANULES
  9. METAMIZOLE [Concomitant]
     Active Substance: METAMIZOLE
     Dosage: 500 MG, 1-1-1-1
  10. CLORAZEPATE DIPOTASSIUM [Concomitant]
     Active Substance: CLORAZEPATE DIPOTASSIUM
     Dosage: STRENGTH: 10 MG, 1-1-1-1

REACTIONS (3)
  - Haematuria [Fatal]
  - Thrombocytopenia [Fatal]
  - Urinary retention [Fatal]
